FAERS Safety Report 21788666 (Version 1)
Quarter: 2022Q4

REPORT INFORMATION
  Report Type: Spontaneous
  Country: ES (occurrence: ES)
  Receive Date: 20221228
  Receipt Date: 20221228
  Transmission Date: 20230112
  Serious: Yes (Life-Threatening, Other)
  Sender: FDA-Public Use
  Company Number: ES-PFIZER INC-PV202200128751

PATIENT
  Sex: Female

DRUGS (3)
  1. CLINDAMYCIN PHOSPHATE [Suspect]
     Active Substance: CLINDAMYCIN PHOSPHATE
     Dosage: UNK
  2. AMPICILLIN [Suspect]
     Active Substance: AMPICILLIN
     Dosage: UNK
  3. GENTAMICIN [Suspect]
     Active Substance: GENTAMICIN
     Dosage: UNK

REACTIONS (1)
  - Acute kidney injury [Unknown]
